FAERS Safety Report 18718679 (Version 1)
Quarter: 2021Q1

REPORT INFORMATION
  Report Type: Spontaneous
  Country: CN (occurrence: CN)
  Receive Date: 20210108
  Receipt Date: 20210108
  Transmission Date: 20210419
  Serious: Yes (Death)
  Sender: FDA-Public Use
  Company Number: CN-ASTRAZENECA-2021A002764

PATIENT
  Age: 65 Year
  Sex: Female
  Weight: 49.5 kg

DRUGS (1)
  1. IMFINZI [Suspect]
     Active Substance: DURVALUMAB
     Indication: NON-SMALL CELL LUNG CANCER STAGE III
     Dosage: 500MG/CYCLE AND THE SPECIFICATION WAS 500 MG /10ML
     Route: 042
     Dates: start: 20200218

REACTIONS (1)
  - Death [Fatal]
